FAERS Safety Report 23466474 (Version 1)
Quarter: 2024Q1

REPORT INFORMATION
  Report Type: Spontaneous
  Country: IT (occurrence: IT)
  Receive Date: 20240201
  Receipt Date: 20240201
  Transmission Date: 20240410
  Serious: Yes (Death)
  Sender: FDA-Public Use
  Company Number: None

PATIENT
  Age: 83 Year
  Sex: Female

DRUGS (6)
  1. TIGECYCLINE [Suspect]
     Active Substance: TIGECYCLINE
     Indication: Acinetobacter sepsis
     Dosage: FREQ:12 H;100 MG X 2/DIE EV
     Route: 042
     Dates: start: 20240118, end: 20240122
  2. LASIX [Concomitant]
     Active Substance: FUROSEMIDE
     Indication: Hypertension
     Dosage: 25MG/DIE
     Route: 048
  3. PANTOPRAZOL SODICO [Concomitant]
     Indication: Prophylaxis against gastrointestinal ulcer
     Dosage: 40 MG, 1X/DAY
     Route: 042
     Dates: start: 20240104, end: 20240123
  4. OLIMEL [Concomitant]
     Active Substance: AMINO ACIDS\DEXTROSE\SOYBEAN OIL
     Dosage: FREQ:1 H;N4E 1 BAG 2000 ML
     Route: 042
     Dates: start: 20231229, end: 20240117
  5. DECADRON [Concomitant]
     Active Substance: DEXAMETHASONE
     Indication: Vasculitis
     Dosage: 8 MG, 1X/DAY
     Route: 042
     Dates: start: 20240104, end: 20240118
  6. AMPICILLIN SODIUM\SULBACTAM SODIUM [Concomitant]
     Active Substance: AMPICILLIN SODIUM\SULBACTAM SODIUM
     Indication: Acinetobacter sepsis
     Dosage: 3 G, 3X/DAY
     Route: 042
     Dates: start: 20240118, end: 20240123

REACTIONS (2)
  - Pancreatitis acute [Fatal]
  - Off label use [Unknown]

NARRATIVE: CASE EVENT DATE: 20240118
